FAERS Safety Report 8461757-6 (Version None)
Quarter: 2012Q2

REPORT INFORMATION
  Report Type: 
  Country: None (occurrence: None)
  Receive Date: 20120618
  Receipt Date: 20120601
  Transmission Date: 20120825
  Serious: Yes (Other)
  Sender: FDA-Public Use
  Company Number: 2012MA006846

PATIENT
  Age: 80 Year
  Sex: Female

DRUGS (6)
  1. METFORMIN HYDROCHLORIDE [Suspect]
     Indication: TYPE 2 DIABETES MELLITUS
     Dosage: 2000 MG;QD;PO
     Route: 048
  2. QUINAPRIL [Concomitant]
  3. B1-B6-B12 COMPLEX [Concomitant]
  4. SITAGLIPTIN [Suspect]
     Indication: TYPE 2 DIABETES MELLITUS
     Dosage: 100 MG;QD;PO
     Route: 048
  5. HYDROCHLOROTHIAZIDE [Concomitant]
  6. SERTRALINE HYDROCHLORIDE [Concomitant]

REACTIONS (1)
  - PEMPHIGOID [None]
